FAERS Safety Report 14775236 (Version 1)
Quarter: 2018Q2

REPORT INFORMATION
  Report Type: Spontaneous
  Country: US (occurrence: US)
  Receive Date: 20180418
  Receipt Date: 20180418
  Transmission Date: 20180711
  Serious: No
  Sender: FDA-Public Use
  Company Number: US-MYLANLABS-2018M1021912

PATIENT
  Sex: Female
  Weight: 68 kg

DRUGS (1)
  1. LIDOCAINE PATCH [Suspect]
     Active Substance: LIDOCAINE
     Indication: INTERVERTEBRAL DISC PROTRUSION
     Dosage: 5 %, UNK
     Route: 003

REACTIONS (3)
  - Application site discomfort [Unknown]
  - Product quality issue [Unknown]
  - Product adhesion issue [Not Recovered/Not Resolved]
